FAERS Safety Report 24171691 (Version 3)
Quarter: 2024Q4

REPORT INFORMATION
  Report Type: Spontaneous
  Country: US (occurrence: US)
  Receive Date: 20240805
  Receipt Date: 20241110
  Transmission Date: 20250115
  Serious: No
  Sender: SANOFI AVENTIS
  Company Number: US-SA-SAC20240731000618

PATIENT
  Age: 29 Year
  Sex: Male
  Weight: 81.65 kg

DRUGS (1)
  1. DUPIXENT [Suspect]
     Active Substance: DUPILUMAB
     Indication: Dermatitis atopic
     Dosage: 600 MG, 1X
     Route: 058
     Dates: start: 202404, end: 202404

REACTIONS (4)
  - Eczema [Not Recovered/Not Resolved]
  - Arthralgia [Not Recovered/Not Resolved]
  - Dermatitis atopic [Unknown]
  - Product dose omission issue [Unknown]

NARRATIVE: CASE EVENT DATE: 20240101
